FAERS Safety Report 16767863 (Version 2)
Quarter: 2019Q4

REPORT INFORMATION
  Report Type: Spontaneous
  Country: US (occurrence: US)
  Receive Date: 20190903
  Receipt Date: 20191002
  Transmission Date: 20200122
  Serious: Yes (Other)
  Sender: FDA-Public Use
  Company Number: US-SA-2019SA237363

PATIENT
  Age: 52 Year
  Sex: Female

DRUGS (1)
  1. LANTUS [Suspect]
     Active Substance: INSULIN GLARGINE
     Indication: DIABETES MELLITUS
     Dosage: 18-20 UNITS, DAILY
     Route: 065

REACTIONS (5)
  - Blood glucose increased [Unknown]
  - Product storage error [Unknown]
  - Incorrect dose administered [Unknown]
  - Product quality issue [Unknown]
  - Blindness transient [Recovered/Resolved]
